FAERS Safety Report 25571689 (Version 1)
Quarter: 2025Q3

REPORT INFORMATION
  Report Type: Spontaneous
  Country: US (occurrence: None)
  Receive Date: 20250717
  Receipt Date: 20250717
  Transmission Date: 20251021
  Serious: Yes (Hospitalization)
  Sender: FDA-CTU
  Company Number: None

PATIENT
  Age: 43 Year
  Sex: Male
  Weight: 241 kg

DRUGS (3)
  1. CISPLATIN [Suspect]
     Active Substance: CISPLATIN
  2. IFOSFAMIDE [Suspect]
     Active Substance: IFOSFAMIDE
  3. TAXOL [Suspect]
     Active Substance: PACLITAXEL

REACTIONS (7)
  - Venous thrombosis [None]
  - Atrial fibrillation [None]
  - Liver disorder [None]
  - Postoperative ileus [None]
  - Pain [None]
  - Effusion [None]
  - Peripheral sensory neuropathy [None]

NARRATIVE: CASE EVENT DATE: 20250529
